FAERS Safety Report 9870620 (Version 1)
Quarter: 2014Q1

REPORT INFORMATION
  Report Type: Spontaneous
  Country: US (occurrence: None)
  Receive Date: 20140204
  Receipt Date: 20140204
  Transmission Date: 20141002
  Serious: Yes (Other)
  Sender: FDA-Public Use
  Company Number: None

PATIENT
  Age: 40 Year
  Sex: 0

DRUGS (10)
  1. LITHIUM CARBONATE [Suspect]
  2. PROZAC [Concomitant]
  3. FLEXERIL [Concomitant]
  4. PRILOSEC [Concomitant]
  5. VALIUM [Concomitant]
  6. DILAUDID [Suspect]
  7. NORCO [Concomitant]
  8. STOMACH PILL [Concomitant]
  9. PREMARIN [Concomitant]
  10. DOXEPIN [Concomitant]

REACTIONS (7)
  - Fibromyalgia [None]
  - Intervertebral disc degeneration [None]
  - Spinal column stenosis [None]
  - Rheumatoid arthritis [None]
  - Obsessive-compulsive disorder [None]
  - Blood glucose decreased [None]
  - Post-traumatic stress disorder [None]
